FAERS Safety Report 5454257-9 (Version None)
Quarter: 2007Q3

REPORT INFORMATION
  Report Type: 
  Country: None (occurrence: None)
  Receive Date: 20070803
  Receipt Date: 20061009
  Transmission Date: 20080115
  Serious: Yes (Other)
  Sender: FDA-Public Use
  Company Number: 2006SP004117

PATIENT
  Age: 43 Year
  Sex: Female
  Weight: 69.4003 kg

DRUGS (5)
  1. INTRON A [Suspect]
     Indication: MALIGNANT MELANOMA
     Dosage: 18 MIU;QD;IM; 18 MIU;TIW;SC
     Route: 030
     Dates: start: 20060706, end: 20060801
  2. INTRON A [Suspect]
     Indication: MALIGNANT MELANOMA
     Dosage: 18 MIU;QD;IM; 18 MIU;TIW;SC
     Route: 030
     Dates: start: 20060801
  3. CENTRUM [Concomitant]
  4. TYLENOL (CAPLET) [Concomitant]
  5. IBUPROFEN [Concomitant]

REACTIONS (11)
  - CONSTIPATION [None]
  - DIARRHOEA [None]
  - EYE DISCHARGE [None]
  - FATIGUE [None]
  - MENORRHAGIA [None]
  - NAUSEA [None]
  - OTORRHOEA [None]
  - PAIN IN EXTREMITY [None]
  - POOR PERIPHERAL CIRCULATION [None]
  - PRODUCTIVE COUGH [None]
  - WHITE BLOOD CELL COUNT DECREASED [None]
